FAERS Safety Report 20687321 (Version 1)
Quarter: 2022Q2

REPORT INFORMATION
  Report Type: Spontaneous
  Country: US (occurrence: US)
  Receive Date: 20220408
  Receipt Date: 20220408
  Transmission Date: 20220720
  Serious: No
  Sender: FDA-Public Use
  Company Number: US-ALLERGAN-2211210US

PATIENT
  Sex: Female

DRUGS (2)
  1. LO LOESTRIN FE [Suspect]
     Active Substance: ETHINYL ESTRADIOL\NORETHINDRONE ACETATE
     Indication: Contraception
     Dosage: 1 DF, QD
     Dates: start: 20180722
  2. DUPILUMAB [Suspect]
     Active Substance: DUPILUMAB
     Indication: Dermatitis atopic
     Dosage: UNK
     Route: 058
     Dates: start: 20180722, end: 20190728

REACTIONS (3)
  - Amenorrhoea [Unknown]
  - Drug ineffective [Unknown]
  - Pregnancy [Unknown]
